FAERS Safety Report 5415285-2 (Version None)
Quarter: 2007Q3

REPORT INFORMATION
  Report Type: 
  Country: None (occurrence: None)
  Receive Date: 20070813
  Receipt Date: 20070802
  Transmission Date: 20080115
  Serious: Yes (Death)
  Sender: FDA-Public Use
  Company Number: 2007AL003163

PATIENT
  Age: 6 Year
  Sex: Female

DRUGS (6)
  1. CLONIDINE [Suspect]
     Indication: DYSTONIA
     Dosage: GT
  2. OXYCODONE HCL [Concomitant]
  3. MORPHINE [Concomitant]
  4. KAVEPENIN [Concomitant]
  5. BACLOFEN [Concomitant]
  6. DIAZEPAM [Concomitant]

REACTIONS (16)
  - ANXIETY [None]
  - BRONCHITIS [None]
  - BRONCHITIS CHRONIC [None]
  - BRONCHOPNEUMONIA [None]
  - CONDITION AGGRAVATED [None]
  - DRUG INEFFECTIVE [None]
  - DYSTONIA [None]
  - HYPERHIDROSIS [None]
  - INCORRECT DOSE ADMINISTERED [None]
  - MUSCULOSKELETAL STIFFNESS [None]
  - NEURODEGENERATIVE DISORDER [None]
  - OXYGEN SATURATION DECREASED [None]
  - RESPIRATORY DISORDER [None]
  - RESPIRATORY RATE DECREASED [None]
  - RESTLESSNESS [None]
  - SKIN WARM [None]
